FAERS Safety Report 7068690-5 (Version None)
Quarter: 2010Q4

REPORT INFORMATION
  Report Type: 
  Country: None (occurrence: None)
  Receive Date: 20101028
  Receipt Date: 20101015
  Transmission Date: 20110411
  Serious: Yes (Other)
  Sender: FDA-Public Use
  Company Number: US-PFIZER INC-2010131513

PATIENT
  Sex: Female

DRUGS (3)
  1. LYRICA [Suspect]
     Indication: NEURALGIA
     Dosage: UNK
     Route: 048
  2. GLUCOPHAGE [Concomitant]
     Indication: DIABETES MELLITUS
     Dosage: 2000 MG, 2X/DAY
     Route: 048
  3. INSULIN DETEMIR [Concomitant]
     Indication: DIABETES MELLITUS
     Dosage: 24 IU, 1X/DAY
     Route: 058

REACTIONS (1)
  - BLOOD GLUCOSE INCREASED [None]
